FAERS Safety Report 8998990 (Version 2)
Quarter: 2013Q1

REPORT INFORMATION
  Report Type: Spontaneous
  Country: US (occurrence: US)
  Receive Date: 20130103
  Receipt Date: 20130123
  Transmission Date: 20140127
  Serious: Yes (Other)
  Sender: FDA-Public Use
  Company Number: US-PFIZER INC-2012332545

PATIENT
  Age: 13 Year
  Sex: Female
  Weight: 42.63 kg

DRUGS (2)
  1. ZITHROMAX [Suspect]
     Indication: EAR INFECTION
     Dosage: 250 MG, 2X/DAY
     Route: 048
     Dates: start: 20121222, end: 20121222
  2. ZITHROMAX [Suspect]
     Dosage: 250 MG, 1X/DAY
     Route: 048
     Dates: start: 20121223, end: 20121226

REACTIONS (2)
  - Angioedema [Recovered/Resolved]
  - Urticaria [Recovered/Resolved]
